FAERS Safety Report 7444258-3 (Version None)
Quarter: 2011Q2

REPORT INFORMATION
  Report Type: 
  Country: None (occurrence: None)
  Receive Date: 20110429
  Receipt Date: 20110418
  Transmission Date: 20111010
  Serious: No
  Sender: FDA-Public Use
  Company Number: US-JNJFOC-20110408580

PATIENT
  Sex: Male
  Weight: 71.67 kg

DRUGS (6)
  1. DURAGESIC [Suspect]
     Route: 062
  2. PREDNISONE [Concomitant]
     Indication: PAIN
     Route: 048
  3. VICODIN [Concomitant]
     Indication: PAIN
     Dosage: 5/500MG OR 50/500MG AS NEEDED
     Route: 048
  4. DURAGESIC [Suspect]
     Indication: BONE PAIN
     Route: 062
  5. DURAGESIC [Suspect]
     Route: 062
  6. CHONDROITIN [Concomitant]
     Indication: ARTHROPATHY
     Route: 048

REACTIONS (3)
  - APPLICATION SITE PRURITUS [None]
  - WITHDRAWAL SYNDROME [None]
  - INAPPROPRIATE SCHEDULE OF DRUG ADMINISTRATION [None]
